FAERS Safety Report 24320598 (Version 1)
Quarter: 2024Q3

REPORT INFORMATION
  Report Type: Report from Study
  Country: US (occurrence: US)
  Receive Date: 20240915
  Receipt Date: 20240915
  Transmission Date: 20241017
  Serious: Yes (Other)
  Sender: ASTELLAS
  Company Number: US-ASTELLAS-2024-AER-004891

PATIENT
  Age: 53 Year
  Sex: Male

DRUGS (1)
  1. ENZALUTAMIDE [Suspect]
     Active Substance: ENZALUTAMIDE
     Indication: Product used for unknown indication
     Route: 048

REACTIONS (6)
  - Erectile dysfunction [Unknown]
  - Irritability [Unknown]
  - Muscle disorder [Unknown]
  - Rash [Unknown]
  - Pain [Unknown]
  - Weight increased [Unknown]
